FAERS Safety Report 24077869 (Version 2)
Quarter: 2024Q3

REPORT INFORMATION
  Report Type: Spontaneous
  Country: US (occurrence: US)
  Receive Date: 20240711
  Receipt Date: 20240723
  Transmission Date: 20241017
  Serious: No
  Sender: NOVARTIS
  Company Number: US-002147023-NVSC2024US143060

PATIENT
  Age: 22 Year
  Sex: Male
  Weight: 77.11 kg

DRUGS (1)
  1. VALSARTAN [Suspect]
     Active Substance: VALSARTAN
     Indication: Hypertension
     Dosage: UNK
     Route: 065

REACTIONS (4)
  - Scab [Unknown]
  - Rash [Unknown]
  - Pruritus genital [Unknown]
  - Pruritus [Unknown]
